FAERS Safety Report 25720533 (Version 1)
Quarter: 2025Q3

REPORT INFORMATION
  Report Type: Spontaneous
  Country: EU (occurrence: EU)
  Receive Date: 20250825
  Receipt Date: 20250825
  Transmission Date: 20251020
  Serious: Yes (Other)
  Sender: AUROBINDO
  Company Number: EU-PURDUE PHARMA-USA-2025-0319510

PATIENT
  Age: 22 Year
  Sex: Female

DRUGS (1)
  1. OXYCODONE [Suspect]
     Active Substance: OXYCODONE
     Indication: Product used for unknown indication
     Route: 048
     Dates: start: 20250516

REACTIONS (3)
  - Psychotic disorder [Unknown]
  - Drug abuse [Unknown]
  - Counterfeit product administered [Unknown]
